FAERS Safety Report 16425423 (Version 2)
Quarter: 2019Q3

REPORT INFORMATION
  Report Type: Spontaneous
  Country: US (occurrence: US)
  Receive Date: 20190613
  Receipt Date: 20190801
  Transmission Date: 20191004
  Serious: Yes (Hospitalization)
  Sender: FDA-Public Use
  Company Number: US-TEVA-2019-US-1061407

PATIENT
  Age: 14 Year
  Sex: Female

DRUGS (1)
  1. TOPIRAMATE. [Suspect]
     Active Substance: TOPIRAMATE
     Indication: MIGRAINE
     Dosage: (} 400 MG/KG)
     Route: 065

REACTIONS (4)
  - Overdose [Unknown]
  - Mental status changes [Recovered/Resolved]
  - Generalised tonic-clonic seizure [Unknown]
  - Toxicity to various agents [Recovering/Resolving]
